FAERS Safety Report 11823150 (Version 1)
Quarter: 2015Q4

REPORT INFORMATION
  Report Type: Spontaneous
  Country: AU (occurrence: AU)
  Receive Date: 20151210
  Receipt Date: 20151210
  Transmission Date: 20160305
  Serious: Yes (Other)
  Sender: FDA-Public Use
  Company Number: AU-PFIZER INC-2015416760

PATIENT
  Sex: Male

DRUGS (2)
  1. TEGRETOL [Interacting]
     Active Substance: CARBAMAZEPINE
  2. DILANTIN [Suspect]
     Active Substance: PHENYTOIN

REACTIONS (3)
  - Drug interaction [Unknown]
  - Inappropriate schedule of drug administration [Unknown]
  - Seizure [Unknown]
